FAERS Safety Report 10010123 (Version 1)
Quarter: 2014Q1

REPORT INFORMATION
  Report Type: Spontaneous
  Country: US (occurrence: US)
  Receive Date: 20140312
  Receipt Date: 20140312
  Transmission Date: 20141002
  Serious: No
  Sender: FDA-Public Use
  Company Number: US-INCYTE CORPORATION-2013IN001419

PATIENT
  Age: 64 Year
  Sex: Female

DRUGS (7)
  1. JAKAFI [Suspect]
     Indication: MYELOFIBROSIS
     Dosage: 10 MG,BID
     Route: 048
     Dates: start: 201305
  2. HYDROXYUREA [Concomitant]
  3. WARFARIN [Concomitant]
  4. URSODIOL [Concomitant]
  5. EFFEXOR [Concomitant]
  6. WELLBUTRIN [Concomitant]
  7. VALACICLOVIR [Concomitant]

REACTIONS (2)
  - Stomatitis [Unknown]
  - Oral discomfort [Unknown]
